FAERS Safety Report 15179279 (Version 1)
Quarter: 2018Q3

REPORT INFORMATION
  Report Type: Spontaneous
  Country: US (occurrence: US)
  Receive Date: 20180723
  Receipt Date: 20180723
  Transmission Date: 20181010
  Serious: Yes (Other)
  Sender: FDA-Public Use
  Company Number: US-009507513-1106USA01735

PATIENT
  Age: 31 Year
  Sex: Female

DRUGS (4)
  1. RETROVIR [Concomitant]
     Active Substance: ZIDOVUDINE
     Dosage: 2 MG/KG, QD
     Route: 042
     Dates: start: 20111022, end: 20111022
  2. RETROVIR [Concomitant]
     Active Substance: ZIDOVUDINE
     Dosage: 1 MG/KG, QD
     Route: 042
     Dates: start: 20111022, end: 20111022
  3. TRUVADA [Suspect]
     Active Substance: EMTRICITABINE\TENOFOVIR DISOPROXIL FUMARATE
     Dosage: 1 DF, QD
     Route: 048
     Dates: start: 20110426
  4. ISENTRESS [Suspect]
     Active Substance: RALTEGRAVIR POTASSIUM
     Dosage: 800 MG, QD
     Route: 048
     Dates: start: 20110426

REACTIONS (2)
  - Placenta praevia [Recovered/Resolved]
  - Exposure during pregnancy [Recovered/Resolved]
